FAERS Safety Report 6730350-5 (Version None)
Quarter: 2010Q2

REPORT INFORMATION
  Report Type: 
  Country: None (occurrence: None)
  Receive Date: 20100518
  Receipt Date: 20100507
  Transmission Date: 20101027
  Serious: Yes (Hospitalization)
  Sender: FDA-Public Use
  Company Number: A0785457A

PATIENT
  Age: 59 Year
  Sex: Female
  Weight: 135.9 kg

DRUGS (1)
  1. AVANDIA [Suspect]
     Dosage: 4MG PER DAY
     Route: 048
     Dates: start: 20020101, end: 20070601

REACTIONS (9)
  - ARRHYTHMIA [None]
  - ARTERIOSCLEROSIS [None]
  - CARDIAC FAILURE CONGESTIVE [None]
  - CAROTID ARTERY OCCLUSION [None]
  - HYPERTENSION [None]
  - JOINT SWELLING [None]
  - NEPHROPATHY [None]
  - THROMBOSIS [None]
  - VISION BLURRED [None]
